FAERS Safety Report 24195627 (Version 1)
Quarter: 2024Q3

REPORT INFORMATION
  Report Type: Spontaneous
  Country: US (occurrence: None)
  Receive Date: 20240809
  Receipt Date: 20240809
  Transmission Date: 20241016
  Serious: Yes (Other)
  Sender: ASTRAZENECA
  Company Number: 2024A177837

PATIENT
  Age: 67 Year
  Sex: Male

DRUGS (1)
  1. ANDEXANET ALFA [Suspect]
     Active Substance: ANDEXANET ALFA
     Indication: Haemorrhage
     Dosage: 30MG/ML
     Route: 042

REACTIONS (3)
  - Heparin resistance [Recovered/Resolved]
  - Cardiopulmonary bypass [Unknown]
  - Intrapericardial thrombosis [Recovered/Resolved]
